FAERS Safety Report 7770020-8 (Version None)
Quarter: 2011Q3

REPORT INFORMATION
  Report Type: 
  Country: None (occurrence: None)
  Receive Date: 20110922
  Receipt Date: 20110531
  Transmission Date: 20111222
  Serious: Yes (Other)
  Sender: FDA-Public Use
  Company Number: US-ASTRAZENECA-2009UW03141

PATIENT
  Age: 389 Month
  Sex: Female

DRUGS (16)
  1. CARDIZEM [Concomitant]
     Route: 048
     Dates: start: 20030701
  2. PROMETHEGAN [Concomitant]
     Dates: start: 20040115
  3. LORATADINE [Concomitant]
     Dates: start: 20040126
  4. SEROQUEL [Suspect]
     Route: 048
     Dates: start: 20030701
  5. PREDNISONE [Concomitant]
     Dates: start: 20040109
  6. SINGULAIR [Concomitant]
     Dates: start: 20030701
  7. FLUOXETINE HYDROCHLORIDE [Concomitant]
     Dates: start: 20040121
  8. PROTONIX [Concomitant]
     Dates: start: 20040113
  9. CLONAZEPAM [Concomitant]
     Route: 048
     Dates: start: 20030701
  10. CLONAZEPAM [Concomitant]
     Dates: start: 20040113
  11. SEROQUEL [Suspect]
     Dosage: 100-200 MG
     Route: 048
     Dates: start: 20040113
  12. SINGULAIR [Concomitant]
     Dates: start: 20040126
  13. CARDIZEM [Concomitant]
     Route: 048
     Dates: start: 20040128
  14. EFFEXOR [Concomitant]
     Route: 048
     Dates: start: 20030701
  15. NEURONTIN [Concomitant]
     Route: 048
     Dates: start: 20030701
  16. CEFUROXIME AXETIL [Concomitant]
     Dates: start: 20040113

REACTIONS (3)
  - HYPERGLYCAEMIA [None]
  - PANCREATITIS [None]
  - TYPE 2 DIABETES MELLITUS [None]
